FAERS Safety Report 4945506-1 (Version None)
Quarter: 2006Q1

REPORT INFORMATION
  Report Type: 
  Country: None (occurrence: None)
  Receive Date: 20060117
  Receipt Date: 20051012
  Transmission Date: 20060701
  Serious: Yes (Other)
  Sender: FDA-Public Use
  Company Number: A03200503247

PATIENT
  Sex: Male

DRUGS (2)
  1. PLAVIX [Suspect]
     Dosage: ORAL
     Route: 048
  2. REOPRO [Suspect]
     Dosage: INTRAVENOUS NOS
     Route: 042

REACTIONS (1)
  - THROMBOCYTOPENIA [None]
